FAERS Safety Report 4796792-2 (Version None)
Quarter: 2005Q4

REPORT INFORMATION
  Report Type: 
  Country: None (occurrence: None)
  Receive Date: 20051011
  Receipt Date: 20051011
  Transmission Date: 20060501
  Serious: Yes (Death)
  Sender: FDA-Public Use
  Company Number: None

PATIENT
  Age: 45 Year
  Sex: Female

DRUGS (2)
  1. TRIMETHOPRIM + SULFAMETHOXAZOLE [Suspect]
     Indication: STAPHYLOCOCCAL INFECTION
     Dosage: INJ
     Dates: start: 20050218, end: 20050222
  2. TRIMETHOPRIM + SULFAMETHOXAZOLE [Suspect]
     Indication: STAPHYLOCOCCAL INFECTION
     Dosage: INJ
     Dates: start: 20050519, end: 20050524

REACTIONS (9)
  - ABSCESS LIMB [None]
  - CHOLELITHIASIS [None]
  - DIARRHOEA [None]
  - EXTRAVASATION [None]
  - HEART RATE INCREASED [None]
  - HYPOTENSION [None]
  - MULTI-ORGAN FAILURE [None]
  - PYREXIA [None]
  - STEVENS-JOHNSON SYNDROME [None]
